FAERS Safety Report 4622422-6 (Version None)
Quarter: 2005Q1

REPORT INFORMATION
  Report Type: 
  Country: None (occurrence: None)
  Receive Date: 20050324
  Receipt Date: 20050324
  Transmission Date: 20050727
  Serious: Yes (Other)
  Sender: FDA-Public Use
  Company Number: None

PATIENT
  Age: 60 Year
  Sex: Female
  Weight: 72.5755 kg

DRUGS (4)
  1. FENTANYL [Suspect]
     Indication: NEUROPATHIC PAIN
     Dosage: 200MCG/HR TRANSDERMAL
     Route: 062
     Dates: start: 20050316
  2. FENTANYL [Suspect]
     Indication: PAIN
     Dosage: 200MCG/HR TRANSDERMAL
     Route: 062
     Dates: start: 20050316
  3. ANALGESIC [Concomitant]
  4. ZOLOFT [Concomitant]

REACTIONS (2)
  - PAIN [None]
  - PHARMACEUTICAL PRODUCT COMPLAINT [None]
